FAERS Safety Report 21117013 (Version 2)
Quarter: 2022Q3

REPORT INFORMATION
  Report Type: Spontaneous
  Country: JP (occurrence: JP)
  Receive Date: 20220722
  Receipt Date: 20220824
  Transmission Date: 20221026
  Serious: Yes (Other)
  Sender: FDA-Public Use
  Company Number: JP-TAKEDA-2022TJP066278

PATIENT
  Age: 7 Decade
  Sex: Female

DRUGS (1)
  1. ENTYVIO [Suspect]
     Active Substance: VEDOLIZUMAB
     Indication: Colitis ulcerative
     Dosage: UNK UNK, Q8WEEKS
     Route: 041

REACTIONS (2)
  - Haematochezia [Not Recovered/Not Resolved]
  - Therapeutic product effect decreased [Unknown]
